FAERS Safety Report 15576703 (Version 1)
Quarter: 2018Q4

REPORT INFORMATION
  Report Type: Spontaneous
  Country: US (occurrence: US)
  Receive Date: 20181101
  Receipt Date: 20181101
  Transmission Date: 20190205
  Serious: Yes (Hospitalization, Other)
  Sender: FDA-Public Use
  Company Number: US-GLAXOSMITHKLINE-US2018GSK196647

PATIENT
  Age: 56 Year
  Sex: Male

DRUGS (4)
  1. ZIAGEN [Concomitant]
     Active Substance: ABACAVIR SULFATE
     Indication: HIV INFECTION
  2. EPIVIR [Suspect]
     Active Substance: LAMIVUDINE
     Indication: HIV INFECTION
  3. TIVICAY [Suspect]
     Active Substance: DOLUTEGRAVIR SODIUM
     Indication: HIV INFECTION
  4. ZIAGEN [Suspect]
     Active Substance: ABACAVIR SULFATE
     Indication: HIV INFECTION

REACTIONS (3)
  - Hospitalisation [Unknown]
  - Gastrostomy [Unknown]
  - Gastrointestinal tube insertion [Unknown]

NARRATIVE: CASE EVENT DATE: 20181002
